FAERS Safety Report 4973700-2 (Version None)
Quarter: 2006Q2

REPORT INFORMATION
  Report Type: 
  Country: None (occurrence: None)
  Receive Date: 20060414
  Receipt Date: 20050105
  Transmission Date: 20061013
  Serious: Yes (Hospitalization, Disabling)
  Sender: FDA-Public Use
  Company Number: US-MERCK-0501USA00417

PATIENT
  Sex: Female

DRUGS (2)
  1. VIOXX [Suspect]
     Route: 048
  2. METHOTREXATE [Concomitant]
     Route: 065

REACTIONS (7)
  - CEREBROVASCULAR ACCIDENT [None]
  - DEPRESSION [None]
  - ELECTROCARDIOGRAM CHANGE [None]
  - PARONYCHIA [None]
  - PERIPHERAL VASCULAR DISORDER [None]
  - RESPIRATORY FAILURE [None]
  - SPEECH DISORDER [None]
